FAERS Safety Report 8840228 (Version 1)
Quarter: 2012Q4

REPORT INFORMATION
  Report Type: 
  Country: DE (occurrence: DE)
  Receive Date: 20121015
  Receipt Date: 20121015
  Transmission Date: 20130627
  Serious: Yes (Other)
  Sender: FDA-Public Use
  Company Number: DE-TEVA-362220GER

PATIENT
  Age: 30 Year
  Sex: Female

DRUGS (4)
  1. CLOZAPINE [Suspect]
     Indication: SCHIZOPHRENIA
     Dosage: 500 [mg/d (100-0-200-200) ]
     Route: 048
     Dates: start: 20100225, end: 20101029
  2. LAMICTAL 100 [Suspect]
     Indication: EPILEPSY
     Dosage: 600 [mg/d (300-0-300) ]
     Route: 048
     Dates: start: 20100225, end: 20101029
  3. KEPPRA [Suspect]
     Indication: EPILEPSY
     Dosage: 3000 [mg/d (1500-0-1500) ]
     Route: 048
     Dates: start: 20100225, end: 20101029
  4. NASIVIN [Concomitant]
     Indication: NASOPHARYNGITIS
     Route: 045

REACTIONS (4)
  - Polyhydramnios [Recovered/Resolved]
  - Pregnancy [Unknown]
  - Caesarean section [None]
  - Exposure during pregnancy [None]
